FAERS Safety Report 12964504 (Version 1)
Quarter: 2016Q4

REPORT INFORMATION
  Report Type: Report from Study
  Country: US (occurrence: US)
  Receive Date: 20161122
  Receipt Date: 20161122
  Transmission Date: 20170207
  Serious: Yes (Hospitalization)
  Sender: FDA-Public Use
  Company Number: US-BAXALTA-2016BLT008279

PATIENT
  Age: 10 Year
  Sex: Female

DRUGS (3)
  1. GAMMAGARD S/D [Suspect]
     Active Substance: HUMAN IMMUNOGLOBULIN G
     Indication: PRIMARY IMMUNODEFICIENCY SYNDROME
     Dosage: UNK
     Route: 065
     Dates: start: 20161031
  2. VANCOMYCIN [Suspect]
     Active Substance: VANCOMYCIN
     Indication: ADVERSE EVENT
     Route: 065
  3. SOLU-MEDROL [Concomitant]
     Active Substance: METHYLPREDNISOLONE SODIUM SUCCINATE
     Indication: PRODUCT USED FOR UNKNOWN INDICATION
     Route: 065

REACTIONS (7)
  - Rash [Unknown]
  - Headache [Unknown]
  - Erythema [Unknown]
  - Pain [Unknown]
  - Pyrexia [Unknown]
  - Red man syndrome [Unknown]
  - Swelling [Unknown]

NARRATIVE: CASE EVENT DATE: 20161031
